FAERS Safety Report 4991247-4 (Version None)
Quarter: 2006Q2

REPORT INFORMATION
  Report Type: 
  Country: None (occurrence: None)
  Receive Date: 20060428
  Receipt Date: 20060417
  Transmission Date: 20061013
  Serious: Yes (Life-Threatening, Hospitalization)
  Sender: FDA-Public Use
  Company Number: GXBR2006US00888

PATIENT
  Sex: Male

DRUGS (3)
  1. THIORIDAZINE HCL [Suspect]
     Indication: SCHIZOAFFECTIVE DISORDER
  2. LITHIUM [Concomitant]
  3. RISPERDAL [Concomitant]

REACTIONS (4)
  - CRYING [None]
  - DIET REFUSAL [None]
  - DRUG WITHDRAWAL SYNDROME [None]
  - WEIGHT DECREASED [None]
